FAERS Safety Report 5027176-X (Version None)
Quarter: 2006Q2

REPORT INFORMATION
  Report Type: 
  Country: None (occurrence: None)
  Receive Date: 20060501
  Receipt Date: 20060116
  Transmission Date: 20061013
  Serious: No
  Sender: FDA-Public Use
  Company Number: 2006PV007114

PATIENT
  Age: 84 Year
  Sex: Male
  Weight: 98.4306 kg

DRUGS (2)
  1. SYMLIN INJECTION (0.6 MG/ML) [Suspect]
     Indication: DIABETES MELLITUS INSULIN-DEPENDENT
     Dosage: 15 MCG;BID;SC
     Route: 058
     Dates: start: 20060113
  2. INSULIN [Concomitant]

REACTIONS (1)
  - WEIGHT DECREASED [None]
